FAERS Safety Report 4395835-8 (Version None)
Quarter: 2004Q3

REPORT INFORMATION
  Report Type: 
  Country: None (occurrence: None)
  Receive Date: 20040707
  Receipt Date: 20040623
  Transmission Date: 20050211
  Serious: Yes (Other)
  Sender: FDA-Public Use
  Company Number: GB-JNJFOC-20040606404

PATIENT
  Age: 42 Year
  Sex: Male

DRUGS (3)
  1. RISPERDAL CONSTA [Suspect]
     Indication: SCHIZOPHRENIA
     Dosage: 37.5 MG, INTRA-MUSCULAR
     Route: 030
  2. CLOZAPINE [Suspect]
     Indication: SCHIZOPHRENIA
     Dosage: 225-450MG/DAY
     Dates: start: 20030626
  3. FERROUS SULFATE TAB [Concomitant]

REACTIONS (14)
  - ABDOMINAL PAIN [None]
  - ASTHENIA [None]
  - BLOOD PROLACTIN INCREASED [None]
  - BODY TEMPERATURE INCREASED [None]
  - DRUG INTERACTION [None]
  - ENDOCRINE DISORDER [None]
  - HYPOTENSION [None]
  - LETHARGY [None]
  - MARKEDLY REDUCED DIETARY INTAKE [None]
  - NEUTROPHIL COUNT INCREASED [None]
  - PHARYNGOLARYNGEAL PAIN [None]
  - SEDATION [None]
  - WEIGHT DECREASED [None]
  - WHITE BLOOD CELL COUNT INCREASED [None]
